FAERS Safety Report 4787178-5 (Version None)
Quarter: 2005Q4

REPORT INFORMATION
  Report Type: 
  Country: None (occurrence: None)
  Receive Date: 20051004
  Receipt Date: 20050922
  Transmission Date: 20060501
  Serious: Yes (Hospitalization)
  Sender: FDA-Public Use
  Company Number: FR-MERCK-0509USA03541

PATIENT
  Age: 74 Year
  Sex: Female

DRUGS (4)
  1. ZOCOR [Suspect]
     Route: 048
     Dates: end: 20050807
  2. PLAVIX [Concomitant]
     Route: 065
  3. SECTRAL [Concomitant]
     Route: 065
  4. VASTAREL [Concomitant]
     Route: 065

REACTIONS (6)
  - BACK PAIN [None]
  - BLOOD CREATININE INCREASED [None]
  - BLOOD LACTATE DEHYDROGENASE INCREASED [None]
  - MYALGIA [None]
  - RHABDOMYOLYSIS [None]
  - TRANSAMINASES INCREASED [None]
